FAERS Safety Report 4286860-6 (Version None)
Quarter: 2004Q1

REPORT INFORMATION
  Report Type: 
  Country: None (occurrence: None)
  Receive Date: 20040204
  Receipt Date: 20040120
  Transmission Date: 20041129
  Serious: Yes (Hospitalization, Other)
  Sender: FDA-Public Use
  Company Number: M04-INT-010

PATIENT
  Age: 37 Year
  Sex: Female

DRUGS (7)
  1. INTEGRILIN [Suspect]
     Indication: CATHETERISATION CARDIAC
  2. ASPIRIN [Concomitant]
  3. CLOPIDOGREL BISULFATE [Concomitant]
  4. HEPARIN [Concomitant]
  5. MORPHINE [Concomitant]
  6. NITROGLYCERIN ^A.L.^ (GLYCERYL TRINITRATE) [Concomitant]
  7. PLAVIX [Concomitant]

REACTIONS (6)
  - ANAEMIA [None]
  - CONTUSION [None]
  - MUCOSAL HAEMORRHAGE [None]
  - PETECHIAE [None]
  - RENAL FAILURE CHRONIC [None]
  - THROMBOCYTOPENIA [None]
